FAERS Safety Report 10757213 (Version 2)
Quarter: 2015Q1

REPORT INFORMATION
  Report Type: Spontaneous
  Country: US (occurrence: US)
  Receive Date: 20150203
  Receipt Date: 20150204
  Transmission Date: 20150721
  Serious: Yes (Other)
  Sender: FDA-Public Use
  Company Number: US-009507513-1502USA000310

PATIENT
  Age: 23 Year
  Sex: Female
  Weight: 142.86 kg

DRUGS (1)
  1. IMPLANON [Suspect]
     Active Substance: ETONOGESTREL
     Indication: CONTRACEPTION
     Dosage: 1 ROD/3 YEARS, INSERTED LEFT ARM
     Route: 059
     Dates: start: 20110213

REACTIONS (8)
  - Abortion spontaneous [Not Recovered/Not Resolved]
  - Menstruation irregular [Not Recovered/Not Resolved]
  - Incorrect drug administration duration [Not Recovered/Not Resolved]
  - Amenorrhoea [Recovered/Resolved]
  - Unintended pregnancy [Recovered/Resolved]
  - Medical device complication [Not Recovered/Not Resolved]
  - Device dislocation [Not Recovered/Not Resolved]
  - Device deployment issue [Not Recovered/Not Resolved]

NARRATIVE: CASE EVENT DATE: 20110213
